FAERS Safety Report 5272883-7 (Version None)
Quarter: 2007Q1

REPORT INFORMATION
  Report Type: 
  Country: None (occurrence: None)
  Receive Date: 20061219
  Receipt Date: 20060921
  Transmission Date: 20070707
  Serious: Yes (Other)
  Sender: FDA-Public Use
  Company Number: US-JNJFOC-20060104505

PATIENT
  Age: 30 Year
  Sex: Female

DRUGS (9)
  1. ORTHO EVRA [Suspect]
     Indication: DRUG USE FOR UNKNOWN INDICATION
     Dosage: 1 DOSE(S), 3 IN 4 WEEK, TRANSDERMAL
     Route: 062
     Dates: start: 20050501, end: 20050801
  2. KARIVA [Suspect]
     Indication: DRUG USE FOR UNKNOWN INDICATION
     Dosage: ORAL
     Route: 048
     Dates: end: 20050801
  3. BUSPAR [Concomitant]
  4. EFFEXOR (TABLET) VENLAFAXINE HYDROCHLORIDE [Concomitant]
  5. MULTIVITAMIN [Concomitant]
  6. MINOCYCLINE (MINOCYCLINE)TABLET [Concomitant]
  7. KLONOPIN [Concomitant]
  8. ADVAIR (SERETIDE MITE) [Concomitant]
  9. EFFEXOR XR [Concomitant]

REACTIONS (1)
  - THROMBOPHLEBITIS [None]
